FAERS Safety Report 9115806 (Version 1)
Quarter: 2013Q1

REPORT INFORMATION
  Report Type: Report from Study
  Country: AR (occurrence: AR)
  Receive Date: 20130224
  Receipt Date: 20130224
  Transmission Date: 20140127
  Serious: Yes (Hospitalization)
  Sender: FDA-Public Use
  Company Number: AR-BRISTOL-MYERS SQUIBB COMPANY-16397416

PATIENT
  Age: 60 Year
  Sex: Male

DRUGS (4)
  1. IPILIMUMAB [Suspect]
     Indication: PROSTATE CANCER
     Route: 042
     Dates: start: 20111012, end: 20111215
  2. RANITIDINE [Concomitant]
     Dates: start: 20111019
  3. METOCLOPRAMIDE [Concomitant]
     Dates: start: 20111019
  4. DICLOFENAC [Concomitant]
     Dates: start: 20111221

REACTIONS (2)
  - Vomiting [Recovered/Resolved]
  - Dehydration [Recovered/Resolved]
